FAERS Safety Report 9562574 (Version 2)
Quarter: 2013Q3

REPORT INFORMATION
  Report Type: Spontaneous
  Country: US (occurrence: US)
  Receive Date: 20130927
  Receipt Date: 20130927
  Transmission Date: 20140515
  Serious: Yes (Hospitalization, Disabling, Other)
  Sender: FDA-Public Use
  Company Number: US-TEVA-426564USA

PATIENT
  Sex: Female

DRUGS (5)
  1. SIMVASTATIN [Suspect]
     Dates: start: 20090726
  2. NORVASC [Concomitant]
  3. METFORMIN [Concomitant]
  4. GLYBURIDE [Concomitant]
  5. AVANDIA [Concomitant]

REACTIONS (6)
  - Rhabdomyolysis [Unknown]
  - Muscular weakness [Unknown]
  - Myalgia [Unknown]
  - Blood creatine phosphokinase increased [Unknown]
  - Paralysis [Unknown]
  - Muscle spasms [Unknown]
